FAERS Safety Report 7587744-8 (Version None)
Quarter: 2011Q3

REPORT INFORMATION
  Report Type: 
  Country: None (occurrence: None)
  Receive Date: 20110704
  Receipt Date: 20110623
  Transmission Date: 20111222
  Serious: Yes (Other)
  Sender: FDA-Public Use
  Company Number: GR-AMGEN-GRCSP2011032293

PATIENT
  Age: 45 Year
  Sex: Female

DRUGS (3)
  1. PROLIA [Suspect]
     Indication: OSTEOPOROSIS
     Dosage: UNK
     Dates: start: 20110613
  2. CILROTON [Concomitant]
  3. OMEPRAZOLE [Concomitant]

REACTIONS (2)
  - RAYNAUD'S PHENOMENON [None]
  - SKIN ULCER [None]
